FAERS Safety Report 8024082-3 (Version None)
Quarter: 2011Q4

REPORT INFORMATION
  Report Type: 
  Country: None (occurrence: None)
  Receive Date: 20111130
  Receipt Date: 20101026
  Transmission Date: 20120403
  Serious: Yes (Hospitalization)
  Sender: FDA-Public Use
  Company Number: 317151

PATIENT
  Age: 36 Year
  Sex: Female
  Weight: 61.2 kg

DRUGS (7)
  1. NOVOLOG [Suspect]
     Indication: TYPE 1 DIABETES MELLITUS
     Dosage: 15 U, TID, SUBCUTANEOUS, SLIDING SCALE
     Route: 058
     Dates: start: 20000101, end: 20101025
  2. NOVOLOG [Suspect]
     Indication: TYPE 1 DIABETES MELLITUS
     Dosage: 15 U, TID, SUBCUTANEOUS, SLIDING SCALE
     Route: 058
     Dates: end: 20101025
  3. LANTUS [Concomitant]
  4. TRAZODONE HCL [Concomitant]
  5. WELLBUTRIN [Concomitant]
  6. CYMBALTA [Concomitant]
  7. IRON (IRON) [Concomitant]

REACTIONS (2)
  - DIABETIC KETOACIDOSIS [None]
  - BLOOD GLUCOSE INCREASED [None]
